FAERS Safety Report 8425459-4 (Version None)
Quarter: 2012Q2

REPORT INFORMATION
  Report Type: 
  Country: None (occurrence: None)
  Receive Date: 20120604
  Receipt Date: 20120604
  Transmission Date: 20120825
  Serious: No
  Sender: FDA-Public Use
  Company Number: 2012SP026482

PATIENT
  Age: 7 Year
  Sex: Male

DRUGS (1)
  1. CEDAX [Suspect]
     Indication: PNEUMONIA
     Dosage: QD
     Route: 048
     Dates: start: 20120514

REACTIONS (2)
  - INCORRECT STORAGE OF DRUG [None]
  - WRONG TECHNIQUE IN DRUG USAGE PROCESS [None]
